FAERS Safety Report 8227416-X (Version None)
Quarter: 2012Q1

REPORT INFORMATION
  Report Type: 
  Country: None (occurrence: None)
  Receive Date: 20120322
  Receipt Date: 20120307
  Transmission Date: 20120608
  Serious: Yes (Hospitalization)
  Sender: FDA-Public Use
  Company Number: US-AMGEN-USASP2012011198

PATIENT
  Age: 61 Year
  Sex: Male
  Weight: 112.47 kg

DRUGS (2)
  1. ENBREL [Suspect]
     Indication: PSORIASIS
     Dosage: 50 MG, QWK
     Route: 058
     Dates: start: 20100928
  2. ENBREL [Suspect]
     Indication: PSORIATIC ARTHROPATHY

REACTIONS (7)
  - JOINT SWELLING [None]
  - SKIN INFECTION [None]
  - ARTHRALGIA [None]
  - SINUS CONGESTION [None]
  - PULMONARY CONGESTION [None]
  - WOUND INFECTION [None]
  - PSORIASIS [None]
